FAERS Safety Report 4952255-2 (Version None)
Quarter: 2006Q1

REPORT INFORMATION
  Report Type: 
  Country: None (occurrence: None)
  Receive Date: 20060315
  Receipt Date: 20060228
  Transmission Date: 20060701
  Serious: Yes (Death, Hospitalization)
  Sender: FDA-Public Use
  Company Number: WSDF_00451

PATIENT
  Age: 67 Year
  Sex: Male
  Weight: 79 kg

DRUGS (14)
  1. WINRHO SDF [Suspect]
     Indication: IDIOPATHIC THROMBOCYTOPENIC PURPURA
     Dosage: 50.6 MCG/KG ONCE IV
     Route: 042
     Dates: start: 20040924, end: 20040924
  2. THEOPHYLLINE [Concomitant]
  3. WELLBUTRIN [Concomitant]
  4. LOPRESSOR [Concomitant]
  5. DIGOXIN [Concomitant]
  6. PREDNISONE [Concomitant]
  7. PROTONIX [Concomitant]
  8. FOLATE [Concomitant]
  9. ALBUTEROL [Concomitant]
  10. TERAZOSIN HCL [Concomitant]
  11. POTASSIUM CHLORIDE [Concomitant]
  12. TYLENOL (CAPLET) [Concomitant]
  13. BENADRYL [Concomitant]
  14. SOLU-MEDROL [Concomitant]

REACTIONS (24)
  - ACID-BASE BALANCE DISORDER MIXED [None]
  - BACK PAIN [None]
  - CARDIAC ARREST [None]
  - CARDIAC FAILURE [None]
  - CONDUCTION DISORDER [None]
  - DIALYSIS [None]
  - DISSEMINATED INTRAVASCULAR COAGULATION [None]
  - ELECTROCARDIOGRAM ST-T CHANGE [None]
  - FLUID OVERLOAD [None]
  - HAEMOGLOBIN DECREASED [None]
  - HAEMOGLOBINURIA [None]
  - HYPERCALCAEMIA [None]
  - INFUSION RELATED REACTION [None]
  - INTRAVASCULAR HAEMOLYSIS [None]
  - JAUNDICE [None]
  - METABOLIC ACIDOSIS [None]
  - MUSCLE SPASMS [None]
  - PARAESTHESIA [None]
  - PROCEDURAL HYPOTENSION [None]
  - REFUSAL OF TREATMENT BY PATIENT [None]
  - RENAL FAILURE ACUTE [None]
  - RESTLESSNESS [None]
  - VENTRICULAR FIBRILLATION [None]
  - VENTRICULAR TACHYCARDIA [None]
